FAERS Safety Report 19024126 (Version 1)
Quarter: 2021Q1

REPORT INFORMATION
  Report Type: Spontaneous
  Country: US (occurrence: US)
  Receive Date: 20210317
  Receipt Date: 20210317
  Transmission Date: 20210420
  Serious: No
  Sender: FDA-Public Use
  Company Number: US-009507513-2103USA003491

PATIENT
  Age: 17 Month
  Sex: Female

DRUGS (6)
  1. RIFAMPIN. [Concomitant]
     Active Substance: RIFAMPIN
     Indication: MENINGITIS
  2. CUBICIN [Suspect]
     Active Substance: DAPTOMYCIN
     Indication: MENINGITIS
  3. CUBICIN [Suspect]
     Active Substance: DAPTOMYCIN
     Indication: BRAIN ABSCESS
  4. RIFAMPIN. [Concomitant]
     Active Substance: RIFAMPIN
     Indication: BRAIN ABSCESS
  5. CEFTRIAXONE. [Concomitant]
     Active Substance: CEFTRIAXONE
     Indication: BRAIN ABSCESS
  6. CEFTRIAXONE. [Concomitant]
     Active Substance: CEFTRIAXONE
     Indication: MENINGITIS

REACTIONS (1)
  - Product use in unapproved indication [Unknown]
